FAERS Safety Report 12928919 (Version 1)
Quarter: 2016Q4

REPORT INFORMATION
  Report Type: Spontaneous
  Country: US (occurrence: US)
  Receive Date: 20161110
  Receipt Date: 20161110
  Transmission Date: 20170207
  Serious: Yes (Other)
  Sender: FDA-Public Use
  Company Number: US-MYLANLABS-2016M1048579

PATIENT

DRUGS (2)
  1. FENRETINIDE [Suspect]
     Active Substance: FENRETINIDE
     Indication: GANGLIONEUROBLASTOMA
     Dosage: FOR 7 DAYS, REPEATED EVERY 21 DAYS
     Route: 048
  2. ISOTRETINOIN [Suspect]
     Active Substance: ISOTRETINOIN
     Indication: GANGLIONEUROBLASTOMA
     Dosage: UNK
     Route: 065

REACTIONS (2)
  - Epiphyses premature fusion [Unknown]
  - Off label use [Unknown]
